FAERS Safety Report 7978618-9 (Version None)
Quarter: 2011Q4

REPORT INFORMATION
  Report Type: 
  Country: None (occurrence: None)
  Receive Date: 20111129
  Receipt Date: 20110913
  Transmission Date: 20120403
  Serious: No
  Sender: FDA-Public Use
  Company Number: PHEH2011US04228

PATIENT
  Age: 14 Year
  Sex: Male

DRUGS (4)
  1. TRAZODONE HCL [Concomitant]
  2. AFINITOR [Suspect]
     Indication: ASTROCYTOMA
     Dosage: 30 MG, WEEK, ORAL
     Route: 048
     Dates: start: 20110625
  3. LAMICTAL [Concomitant]
  4. CLONIDINE [Concomitant]

REACTIONS (1)
  - AGGRESSION [None]
